FAERS Safety Report 14874484 (Version 1)
Quarter: 2018Q2

REPORT INFORMATION
  Report Type: Spontaneous
  Country: US (occurrence: US)
  Receive Date: 20180424
  Receipt Date: 20180424
  Transmission Date: 20180711
  Serious: Yes (Disabling)
  Sender: FDA-Public Use
  Company Number: None

PATIENT
  Age: 19 Year
  Sex: Female
  Weight: 48.6 kg

DRUGS (3)
  1. AMANTADINE. [Suspect]
     Active Substance: AMANTADINE HYDROCHLORIDE
     Indication: ATTENTION DEFICIT/HYPERACTIVITY DISORDER
  2. TEGRETOL [Concomitant]
     Active Substance: CARBAMAZEPINE
  3. LAMICTAL [Concomitant]
     Active Substance: LAMOTRIGINE

REACTIONS (11)
  - Pallor [None]
  - Dizziness postural [None]
  - Livedo reticularis [None]
  - Discomfort [None]
  - Therapy change [None]
  - Skin discolouration [None]
  - Off label use [None]
  - Dizziness [None]
  - Hypoaesthesia [None]
  - Restless legs syndrome [None]
  - Paraesthesia [None]

NARRATIVE: CASE EVENT DATE: 20150401
